FAERS Safety Report 7576694-9 (Version None)
Quarter: 2011Q2

REPORT INFORMATION
  Report Type: 
  Country: None (occurrence: None)
  Receive Date: 20110624
  Receipt Date: 20110624
  Transmission Date: 20111010
  Serious: Yes (Life-Threatening, Hospitalization)
  Sender: FDA-Public Use
  Company Number: None

PATIENT
  Age: 46 Year
  Sex: Female
  Weight: 66 kg

DRUGS (2)
  1. ATAZANAVIR [Suspect]
     Indication: ACQUIRED IMMUNODEFICIENCY SYNDROME
     Dosage: 200MG QD PO
     Route: 048
     Dates: start: 20080801, end: 20110324
  2. KALETRA [Suspect]
     Dosage: 200MG/50MG BID PO
     Route: 048

REACTIONS (5)
  - SICK SINUS SYNDROME [None]
  - RESTRICTIVE CARDIOMYOPATHY [None]
  - ELECTROCARDIOGRAM QT PROLONGED [None]
  - TORSADE DE POINTES [None]
  - DRUG INTERACTION [None]
